FAERS Safety Report 18585440 (Version 1)
Quarter: 2020Q4

REPORT INFORMATION
  Report Type: Spontaneous
  Country: ES (occurrence: ES)
  Receive Date: 20201207
  Receipt Date: 20201207
  Transmission Date: 20210114
  Serious: Yes (Other)
  Sender: FDA-Public Use
  Company Number: ES-MYLANLABS-2020M1098589

PATIENT
  Age: 57 Year
  Sex: Male

DRUGS (6)
  1. BROMAZEPAM [Suspect]
     Active Substance: BROMAZEPAM
     Indication: ANXIETY
     Dosage: 1.5 MILLIGRAM, Q8H
     Dates: start: 20200709, end: 20200826
  2. BROMAZEPAM [Suspect]
     Active Substance: BROMAZEPAM
     Dosage: 1.5 MILLIGRAM, QD, 24 HRS
     Dates: start: 20201008, end: 202010
  3. BROMAZEPAM [Suspect]
     Active Substance: BROMAZEPAM
     Dosage: 1.5 MILLIGRAM, BID
     Dates: start: 20200827, end: 20201007
  4. ATORVASTATINA                      /01326101/ [Concomitant]
     Active Substance: ATORVASTATIN
     Dosage: 40 MILLIGRAM, QD
     Dates: start: 20151007
  5. PAROXETINE. [Suspect]
     Active Substance: PAROXETINE
     Indication: ANXIETY
     Dosage: 20 MILLIGRAM, QD, 24 HRS
     Dates: start: 20200827, end: 20201013
  6. FOSTER                             /00500401/ [Concomitant]
     Active Substance: PIROXICAM
     Dosage: 2 INH/12H, PULSACION SOLUCION PARA INHALACION EN ENVASE A PRESION
     Dates: start: 20180402

REACTIONS (1)
  - Erectile dysfunction [Recovered/Resolved]

NARRATIVE: CASE EVENT DATE: 202008
